FAERS Safety Report 20223098 (Version 1)
Quarter: 2021Q4

REPORT INFORMATION
  Report Type: Spontaneous
  Country: GB (occurrence: GB)
  Receive Date: 20211223
  Receipt Date: 20211223
  Transmission Date: 20220304
  Serious: Yes (Other)
  Sender: FDA-Public Use
  Company Number: None

PATIENT
  Age: 21 Year
  Sex: Female
  Weight: 61.68 kg

DRUGS (3)
  1. BETAMETHASONE VALERATE [Suspect]
     Active Substance: BETAMETHASONE VALERATE
     Indication: Eczema
     Dosage: APPLIED VERY THINLY FOR A FIARE UP FOR UP TO A WEEK AT A TIME
     Route: 061
     Dates: start: 20171101
  2. LEVEST [ETHINYLESTRADIOL;LEVONORGESTREL] [Concomitant]
     Dosage: UNK
  3. PENICILLIN [Concomitant]
     Active Substance: PENICILLIN
     Dosage: UNK

REACTIONS (4)
  - Dependence [Not Recovered/Not Resolved]
  - Topical steroid withdrawal reaction [Not Recovered/Not Resolved]
  - Therapeutic product effect decreased [Not Recovered/Not Resolved]
  - Inflammation [Not Recovered/Not Resolved]

NARRATIVE: CASE EVENT DATE: 20201001
